FAERS Safety Report 15356886 (Version 1)
Quarter: 2018Q3

REPORT INFORMATION
  Report Type: Spontaneous
  Country: BR (occurrence: BR)
  Receive Date: 20180906
  Receipt Date: 20180906
  Transmission Date: 20181010
  Serious: Yes (Hospitalization, Other)
  Sender: FDA-Public Use
  Company Number: BR-ASTRAZENECA-2018SF10898

PATIENT
  Age: 79 Year
  Sex: Male

DRUGS (10)
  1. PURAN [Concomitant]
     Active Substance: LEVOTHYROXINE SODIUM
     Indication: THYROID DISORDER
  2. LITHIUM. [Concomitant]
     Active Substance: LITHIUM
  3. HYDROCHLOROTHIAZIDE. [Concomitant]
     Active Substance: HYDROCHLOROTHIAZIDE
  4. CARDIZEM [Concomitant]
     Active Substance: DILTIAZEM HYDROCHLORIDE
  5. FORXIGA [Suspect]
     Active Substance: DAPAGLIFLOZIN
     Indication: DIABETES MELLITUS
     Route: 048
     Dates: start: 2015
  6. KOMBIGLYZE XR [Suspect]
     Active Substance: METFORMIN HYDROCHLORIDE\SAXAGLIPTIN HYDROCHLORIDE
     Indication: DIABETES MELLITUS
     Route: 048
     Dates: start: 2015
  7. MONOCORDIL [Concomitant]
     Active Substance: ISOSORBIDE MONONITRATE
  8. ENALAPRIL [Concomitant]
     Active Substance: ENALAPRIL
  9. FENOFIBRATE. [Concomitant]
     Active Substance: FENOFIBRATE
  10. GLIFAGE [Concomitant]
     Active Substance: METFORMIN HYDROCHLORIDE

REACTIONS (5)
  - Peripheral swelling [Recovering/Resolving]
  - Hypotension [Recovered/Resolved]
  - Blood creatinine increased [Not Recovered/Not Resolved]
  - Ischaemia [Recovered/Resolved]
  - Inguinal hernia [Not Recovered/Not Resolved]

NARRATIVE: CASE EVENT DATE: 201710
